FAERS Safety Report 21307495 (Version 1)
Quarter: 2022Q3

REPORT INFORMATION
  Report Type: Report from Study
  Country: PK (occurrence: PK)
  Receive Date: 20220908
  Receipt Date: 20220908
  Transmission Date: 20221027
  Serious: Yes (Death)
  Sender: FDA-Public Use
  Company Number: PK-NOVARTISPH-NVSC2022PK202699

PATIENT
  Age: 54 Year
  Sex: Female
  Weight: 70 kg

DRUGS (1)
  1. GLIVEC [Suspect]
     Active Substance: IMATINIB MESYLATE
     Indication: Philadelphia positive chronic myeloid leukaemia
     Dosage: 100 MG (400 BD)
     Route: 048
     Dates: start: 20211012

REACTIONS (2)
  - Malignant neoplasm progression [Fatal]
  - Philadelphia positive chronic myeloid leukaemia [Fatal]

NARRATIVE: CASE EVENT DATE: 20220614
